FAERS Safety Report 16107718 (Version 1)
Quarter: 2019Q1

REPORT INFORMATION
  Report Type: Spontaneous
  Country: US (occurrence: US)
  Receive Date: 20190322
  Receipt Date: 20190322
  Transmission Date: 20190418
  Serious: Yes (Other)
  Sender: FDA-Public Use
  Company Number: PHEH2019US012095

PATIENT
  Sex: Male

DRUGS (3)
  1. TAMSULOSIN [Suspect]
     Active Substance: TAMSULOSIN
     Indication: PROSTATOMEGALY
     Route: 065
     Dates: start: 20150928, end: 201804
  2. TAMSULOSIN [Suspect]
     Active Substance: TAMSULOSIN
     Indication: PROSTATOMEGALY
     Route: 065
     Dates: start: 20150928, end: 201804
  3. FLOMAX [Suspect]
     Active Substance: TAMSULOSIN HYDROCHLORIDE
     Indication: PROSTATOMEGALY
     Route: 065
     Dates: start: 20150928, end: 201804

REACTIONS (17)
  - Suicidal ideation [Recovering/Resolving]
  - Chest pain [Recovering/Resolving]
  - Vision blurred [Recovering/Resolving]
  - Tooth loss [Recovered/Resolved]
  - Erectile dysfunction [Unknown]
  - Depressed mood [Unknown]
  - Decreased appetite [Unknown]
  - Visual impairment [Unknown]
  - Mood swings [Unknown]
  - Back pain [Recovering/Resolving]
  - Anger [Unknown]
  - Dizziness [Unknown]
  - Depression [Recovering/Resolving]
  - Weight decreased [Unknown]
  - Asthenia [Unknown]
  - Frustration tolerance decreased [Unknown]
  - Fatigue [Unknown]
